FAERS Safety Report 20146706 (Version 1)
Quarter: 2021Q4

REPORT INFORMATION
  Report Type: Spontaneous
  Country: PL (occurrence: PL)
  Receive Date: 20211203
  Receipt Date: 20211203
  Transmission Date: 20220303
  Serious: Yes (Other)
  Sender: FDA-Public Use
  Company Number: PL-NOVARTISPH-NVSC2021PL272523

PATIENT
  Age: 44 Year
  Sex: Female

DRUGS (2)
  1. GEMCITABINE [Suspect]
     Active Substance: GEMCITABINE
     Indication: Leiomyosarcoma metastatic
     Dosage: 900 MG/M2 ON DAYS 1, 8 EVERY 3 WEEKS
     Route: 065
  2. DOCETAXEL [Suspect]
     Active Substance: DOCETAXEL
     Indication: Leiomyosarcoma metastatic
     Dosage: 100 MG/M2 ON DAY 8 EVERY 3 WEEKS
     Route: 065

REACTIONS (4)
  - Peripheral sensory neuropathy [Unknown]
  - Oedema peripheral [Unknown]
  - Skin exfoliation [Unknown]
  - Product use in unapproved indication [Unknown]
